FAERS Safety Report 8136390-6 (Version None)
Quarter: 2012Q1

REPORT INFORMATION
  Report Type: 
  Country: None (occurrence: None)
  Receive Date: 20120214
  Receipt Date: 20120203
  Transmission Date: 20120608
  Serious: Yes (Hospitalization)
  Sender: FDA-Public Use
  Company Number: US-ELI_LILLY_AND_COMPANY-US201112000714

PATIENT
  Sex: Female

DRUGS (6)
  1. CYCLOBENZAPRINE [Concomitant]
  2. NEURONTIN [Concomitant]
  3. ESTRACE [Concomitant]
  4. FORTEO [Suspect]
     Dosage: 20 UG, QD
     Route: 065
     Dates: start: 20120106
  5. FORTEO [Suspect]
     Indication: OSTEOPOROSIS
     Dosage: 20 UG, QD
     Route: 065
     Dates: start: 20111027, end: 20111101
  6. CELEXA [Concomitant]

REACTIONS (4)
  - PAIN [None]
  - ASTHENIA [None]
  - LOSS OF CONSCIOUSNESS [None]
  - FOOT FRACTURE [None]
